FAERS Safety Report 5290493-2 (Version None)
Quarter: 2007Q2

REPORT INFORMATION
  Report Type: 
  Country: None (occurrence: None)
  Receive Date: 20070404
  Receipt Date: 20070404
  Transmission Date: 20071010
  Serious: No
  Sender: FDA-Public Use
  Company Number: None

PATIENT

DRUGS (1)
  1. CARDIOPLEGIC [Suspect]

REACTIONS (3)
  - CARDIAC ARREST [None]
  - DRUG ADMINISTRATION ERROR [None]
  - HEART TRANSPLANT [None]
